FAERS Safety Report 9541966 (Version 2)
Quarter: 2013Q3

REPORT INFORMATION
  Report Type: Report from Study
  Country: BR (occurrence: BR)
  Receive Date: 20130923
  Receipt Date: 20130923
  Transmission Date: 20140515
  Serious: Yes (Hospitalization, Other)
  Sender: FDA-Public Use
  Company Number: BR-BAYER-2013-110300

PATIENT
  Age: 83 Year
  Sex: Female
  Weight: 70 kg

DRUGS (4)
  1. NEXAVAR [Suspect]
     Indication: HEPATIC CANCER
     Dosage: UNK
     Route: 048
     Dates: start: 2012
  2. NORFLOXACIN [Concomitant]
     Indication: PROPHYLAXIS URINARY TRACT INFECTION
     Dosage: 1 DF, QD
     Route: 048
     Dates: start: 201301
  3. BACTRIM [Concomitant]
     Indication: PROPHYLAXIS URINARY TRACT INFECTION
  4. CEFUROXIME [Concomitant]
     Indication: PROPHYLAXIS URINARY TRACT INFECTION
     Dosage: 2 DF, QD
     Dates: start: 20130904

REACTIONS (8)
  - Eating disorder [Recovered/Resolved]
  - Urinary tract infection [Recovered/Resolved]
  - Ascites [Not Recovered/Not Resolved]
  - Diarrhoea [Recovered/Resolved]
  - Nausea [Recovered/Resolved]
  - Pyrexia [Recovered/Resolved]
  - Oedema peripheral [Not Recovered/Not Resolved]
  - Hypertension [Recovered/Resolved]
